FAERS Safety Report 5226504-X (Version None)
Quarter: 2007Q1

REPORT INFORMATION
  Report Type: 
  Country: None (occurrence: None)
  Receive Date: 20070201
  Receipt Date: 20070123
  Transmission Date: 20070707
  Serious: Yes (Other)
  Sender: FDA-Public Use
  Company Number: JP-PFIZER INC-2006154011

PATIENT
  Sex: Female

DRUGS (4)
  1. LIPITOR [Suspect]
     Indication: HYPERLIPIDAEMIA
     Dosage: DAILY DOSE:10MG
     Route: 048
     Dates: start: 20060823, end: 20061214
  2. AMLODIPINE BESYLATE [Concomitant]
     Indication: HYPERTENSION
     Dosage: DAILY DOSE:2.5MG
     Route: 048
  3. INDERAL [Concomitant]
     Indication: TACHYCARDIA
     Dosage: DAILY DOSE:10MG
     Route: 048
     Dates: start: 20060821, end: 20061222
  4. CLOTIAZEPAM [Concomitant]
     Indication: TACHYCARDIA
     Route: 048
     Dates: start: 20060821, end: 20061222

REACTIONS (1)
  - LIVER DISORDER [None]
